FAERS Safety Report 4551055-5 (Version None)
Quarter: 2005Q1

REPORT INFORMATION
  Report Type: 
  Country: None (occurrence: None)
  Receive Date: 20050113
  Receipt Date: 20041105
  Transmission Date: 20050727
  Serious: No
  Sender: FDA-Public Use
  Company Number: US-BRISTOL-MYERS SQUIBB COMPANY-12758397

PATIENT
  Sex: Male

DRUGS (3)
  1. DESYREL [Suspect]
     Route: 048
  2. DILANTIN [Concomitant]
  3. NEURONTIN [Concomitant]

REACTIONS (3)
  - BURNING SENSATION [None]
  - PAIN [None]
  - PYREXIA [None]
